FAERS Safety Report 17392240 (Version 2)
Quarter: 2020Q1

REPORT INFORMATION
  Report Type: Report from Study
  Country: US (occurrence: US)
  Receive Date: 20200207
  Receipt Date: 20200220
  Transmission Date: 20200409
  Serious: Yes (Hospitalization)
  Sender: FDA-Public Use
  Company Number: NVSC2020US030451

PATIENT
  Sex: Male

DRUGS (1)
  1. ZOLGENSMA [Suspect]
     Active Substance: ONASEMNOGENE ABEPARVOVEC-XIOI
     Indication: SPINAL MUSCULAR ATROPHY
     Dosage: UNK, ONCE/SINGLE (1.1X10 TO THE 14TH VECTOR GENOMES (VG) PER KG WEIGHT)
     Route: 042
     Dates: start: 20200117

REACTIONS (3)
  - Influenza [Unknown]
  - Rhinovirus infection [Unknown]
  - Aspiration [Unknown]
